FAERS Safety Report 6925072-1 (Version None)
Quarter: 2010Q3

REPORT INFORMATION
  Report Type: 
  Country: None (occurrence: None)
  Receive Date: 20100816
  Receipt Date: 20100806
  Transmission Date: 20110219
  Serious: Yes (Death)
  Sender: FDA-Public Use
  Company Number: DE-MPIJNJ-2010-04221

PATIENT

DRUGS (1)
  1. VELCADE [Suspect]
     Indication: MULTIPLE MYELOMA
     Dosage: 2.67 MG, UNK
     Route: 042
     Dates: start: 20091218, end: 20100701

REACTIONS (1)
  - MYOCARDIAL INFARCTION [None]
